FAERS Safety Report 24908806 (Version 1)
Quarter: 2025Q1

REPORT INFORMATION
  Report Type: Spontaneous
  Country: GB (occurrence: GB)
  Receive Date: 20250131
  Receipt Date: 20250131
  Transmission Date: 20250409
  Serious: Yes (Hospitalization, Other)
  Sender: ADVANZ PHARMA
  Company Number: GB-STRIDES ARCOLAB LIMITED-2025SP000902

PATIENT

DRUGS (1)
  1. PREDNISOLONE [Suspect]
     Active Substance: PREDNISOLONE
     Indication: Systemic lupus erythematosus

REACTIONS (2)
  - Substance-induced psychotic disorder [Recovered/Resolved]
  - Hallucination [Recovered/Resolved]
